FAERS Safety Report 12794938 (Version 1)
Quarter: 2016Q3

REPORT INFORMATION
  Report Type: Spontaneous
  Country: US (occurrence: US)
  Receive Date: 20160929
  Receipt Date: 20160929
  Transmission Date: 20161109
  Serious: No
  Sender: FDA-Public Use
  Company Number: US-BAUSCH-BL-2016-017238

PATIENT
  Sex: Male

DRUGS (2)
  1. TOLNAFTATE. [Concomitant]
     Active Substance: TOLNAFTATE
     Indication: ONYCHOMYCOSIS
     Route: 061
     Dates: start: 201602
  2. JUBLIA [Suspect]
     Active Substance: EFINACONAZOLE
     Indication: ONYCHOMYCOSIS
     Route: 061
     Dates: start: 201503, end: 201602

REACTIONS (1)
  - Drug effect incomplete [Unknown]

NARRATIVE: CASE EVENT DATE: 201602
